FAERS Safety Report 22592715 (Version 1)
Quarter: 2023Q2

REPORT INFORMATION
  Report Type: Spontaneous
  Country: US (occurrence: US)
  Receive Date: 20230613
  Receipt Date: 20230613
  Transmission Date: 20230722
  Serious: Yes (Other)
  Sender: FDA-Public Use
  Company Number: US-UCBSA-2023029209

PATIENT
  Age: 24 Year
  Sex: Male
  Weight: 117.91 kg

DRUGS (3)
  1. KEPPRA [Suspect]
     Active Substance: LEVETIRACETAM
     Indication: Seizure
     Dosage: 1000 MILLIGRAM, 2X/DAY (BID)
  2. CENOBAMATE [Suspect]
     Active Substance: CENOBAMATE
     Indication: Seizure
     Dosage: 150 MILLIGRAM, ONCE DAILY (QD)
  3. LAMICTAL [Suspect]
     Active Substance: LAMOTRIGINE
     Indication: Seizure
     Dosage: 150 MILLIGRAM, 2X/DAY (BID)

REACTIONS (1)
  - Seizure [Unknown]
